FAERS Safety Report 20767782 (Version 4)
Quarter: 2022Q4

REPORT INFORMATION
  Report Type: Spontaneous
  Country: US (occurrence: US)
  Receive Date: 20220429
  Receipt Date: 20221211
  Transmission Date: 20230112
  Serious: Yes (Other)
  Sender: FDA-Public Use
  Company Number: US-EXELIXIS-CABO-22051194

PATIENT
  Age: 71 Year
  Sex: Male

DRUGS (5)
  1. OPDIVO [Suspect]
     Active Substance: NIVOLUMAB
     Indication: Renal cancer
  2. OPDIVO [Suspect]
     Active Substance: NIVOLUMAB
  3. CABOMETYX [Suspect]
     Active Substance: CABOZANTINIB S-MALATE
     Indication: Renal cancer
     Dosage: UNK
     Route: 048
     Dates: start: 20180524
  4. CABOMETYX [Suspect]
     Active Substance: CABOZANTINIB S-MALATE
     Dosage: 20 MG, QD
     Route: 048
     Dates: end: 20220616
  5. CABOMETYX [Suspect]
     Active Substance: CABOZANTINIB S-MALATE
     Dosage: 20 MG (5 DAYS ON AND 2 DAYS OFF)
     Route: 048

REACTIONS (4)
  - Foot deformity [Unknown]
  - Oropharyngeal discomfort [Unknown]
  - Palmar-plantar erythrodysaesthesia syndrome [Unknown]
  - Abdominal lymphadenopathy [Recovering/Resolving]
